FAERS Safety Report 13459408 (Version 3)
Quarter: 2020Q3

REPORT INFORMATION
  Report Type: Report from Study
  Country: US (occurrence: US)
  Receive Date: 20170419
  Receipt Date: 20200817
  Transmission Date: 20201102
  Serious: Yes (Hospitalization)
  Sender: FDA-Public Use
  Company Number: US-ACTELION-A-US2006-13668

PATIENT
  Age: 59 Year
  Sex: Female
  Weight: 53.06 kg

DRUGS (3)
  1. TRACLEER [Suspect]
     Active Substance: BOSENTAN
     Indication: PULMONARY ARTERIAL HYPERTENSION
     Dosage: UNK
     Route: 048
     Dates: start: 20061010
  2. ORENITRAM [Concomitant]
     Active Substance: TREPROSTINIL
  3. AMLODIPINE [Concomitant]
     Active Substance: AMLODIPINE BESYLATE

REACTIONS (9)
  - Asthenia [Unknown]
  - Sneezing [Unknown]
  - Cardiac operation [Unknown]
  - Nasal congestion [Unknown]
  - Living in residential institution [Not Recovered/Not Resolved]
  - Gait disturbance [Unknown]
  - Cardiac valve disease [Unknown]
  - Dyspnoea [Unknown]
  - Insomnia [Unknown]

NARRATIVE: CASE EVENT DATE: 200610
